FAERS Safety Report 4288592-7 (Version None)
Quarter: 2004Q1

REPORT INFORMATION
  Report Type: 
  Country: None (occurrence: None)
  Receive Date: 20040205
  Receipt Date: 20040122
  Transmission Date: 20041129
  Serious: Yes (Hospitalization)
  Sender: FDA-Public Use
  Company Number: RENA-10800

PATIENT
  Age: 52 Year
  Sex: Male

DRUGS (12)
  1. PHOSBLOCK - 250 MG TABLTE [Suspect]
     Indication: HYPERPHOSPHATAEMIA
     Dosage: 1.5 G QD PO
     Route: 048
     Dates: start: 20030626, end: 20031021
  2. ALLOPURINOL [Concomitant]
  3. FALECALCITRIOL [Concomitant]
  4. CILNIDIPINE [Concomitant]
  5. CALCIUM POLYSTYRENE SULFONATE [Concomitant]
  6. SENNOSIDE A, B [Concomitant]
  7. TEMOCAPRIL HYDROCHLORIDE [Concomitant]
  8. CANDESARTAN CILEXETIL [Concomitant]
  9. TRICHLORMETHIAZIDE [Concomitant]
  10. FUROSEMIDE [Concomitant]
  11. ASPIRIN [Concomitant]
  12. SENNOSIDE A, B CALCIUM SALT [Concomitant]

REACTIONS (1)
  - INTESTINAL OBSTRUCTION [None]
